FAERS Safety Report 12289421 (Version 1)
Quarter: 2016Q2

REPORT INFORMATION
  Report Type: Spontaneous
  Country: US (occurrence: None)
  Receive Date: 20160420
  Receipt Date: 20160420
  Transmission Date: 20160815
  Serious: No
  Sender: FDA-Public Use
  Company Number: None

PATIENT
  Age: 21 Year
  Sex: Female

DRUGS (1)
  1. GILENYA [Suspect]
     Active Substance: FINGOLIMOD HYDROCHLORIDE
     Indication: PRODUCT USED FOR UNKNOWN INDICATION
     Dosage: AWAITING DOSE DECREASE RX
     Route: 048
     Dates: start: 20130211

REACTIONS (3)
  - White blood cell count decreased [None]
  - Therapy change [None]
  - Anxiety [None]

NARRATIVE: CASE EVENT DATE: 20160401
